FAERS Safety Report 7400212-9 (Version None)
Quarter: 2011Q2

REPORT INFORMATION
  Report Type: 
  Country: None (occurrence: None)
  Receive Date: 20110407
  Receipt Date: 20110325
  Transmission Date: 20111010
  Serious: Yes (Hospitalization)
  Sender: FDA-Public Use
  Company Number: US-ACTELION-A-US2011-46812

PATIENT

DRUGS (6)
  1. TRACLEER [Suspect]
     Indication: PULMONARY ARTERIAL HYPERTENSION
     Dosage: UNK
     Route: 048
     Dates: start: 20070509
  2. ASMANEX TWISTHALER [Concomitant]
  3. QVAR 40 [Concomitant]
  4. VENTAVIS [Suspect]
     Dosage: UNK
     Route: 054
  5. VENTAVIS [Suspect]
     Indication: PULMONARY ARTERIAL HYPERTENSION
     Dosage: 5 UG, UNK
     Route: 055
  6. VENTAVIS [Suspect]
     Dosage: 2.5 UG, UNK
     Route: 055
     Dates: start: 20110323

REACTIONS (4)
  - CHRONIC OBSTRUCTIVE PULMONARY DISEASE [None]
  - DYSPNOEA [None]
  - CHEST PAIN [None]
  - COUGH [None]
